FAERS Safety Report 24119961 (Version 1)
Quarter: 2024Q3

REPORT INFORMATION
  Report Type: Other
  Country: MT (occurrence: MT)
  Receive Date: 20240722
  Receipt Date: 20240722
  Transmission Date: 20241017
  Serious: Yes (Other)
  Sender: BIOCON
  Company Number: MT-SEATTLE GENETICS-2023SGN05182

PATIENT

DRUGS (5)
  1. TRASTUZUMAB [Suspect]
     Active Substance: TRASTUZUMAB
     Indication: Breast cancer
     Dosage: UNK UNK, Q3W
     Route: 065
     Dates: start: 20221108, end: 20230630
  2. TRASTUZUMAB [Suspect]
     Active Substance: TRASTUZUMAB
     Indication: HER2 positive breast cancer
  3. CAPECITABINE [Suspect]
     Active Substance: CAPECITABINE
     Indication: HER2 positive breast cancer
     Dosage: 2000 MILLIGRAM/SQ. METER, QD, 1000 MG/M2, BID
     Route: 065
     Dates: start: 20221108, end: 20230630
  4. CAPECITABINE [Suspect]
     Active Substance: CAPECITABINE
     Indication: Breast cancer
  5. TUKYSA [Suspect]
     Active Substance: TUCATINIB
     Indication: Breast cancer
     Dosage: 600 MILLIGRAM, QD, 300 MG, BID
     Route: 048
     Dates: start: 20221108, end: 20230104

REACTIONS (3)
  - Hyperbilirubinaemia [Not Recovered/Not Resolved]
  - Hepatotoxicity [Unknown]
  - Malignant neoplasm progression [Unknown]

NARRATIVE: CASE EVENT DATE: 20221201
